FAERS Safety Report 21673477 (Version 2)
Quarter: 2023Q4

REPORT INFORMATION
  Report Type: Report from Study
  Country: FR (occurrence: FR)
  Receive Date: 20221202
  Receipt Date: 20231101
  Transmission Date: 20240109
  Serious: Yes (Death, Other)
  Sender: FDA-Public Use
  Company Number: FR-JNJFOC-20221155356

PATIENT
  Age: 37 Year
  Sex: Male

DRUGS (3)
  1. BORTEZOMIB [Suspect]
     Active Substance: BORTEZOMIB
     Indication: Plasma cell myeloma
     Dosage: UNK
     Route: 065
     Dates: end: 20190620
  2. DEXAMETHASONE [Suspect]
     Active Substance: DEXAMETHASONE
     Indication: Plasma cell myeloma
     Dosage: UNK
     Route: 065
  3. BENDAMUSTINE [Suspect]
     Active Substance: BENDAMUSTINE
     Indication: Plasma cell myeloma
     Dosage: 90 MILLIGRAM/SQ. METER, 2/WEEK
     Route: 065
     Dates: end: 20190620

REACTIONS (4)
  - Plasma cell myeloma [Fatal]
  - Toxicity to various agents [Unknown]
  - Intentional product use issue [Unknown]
  - Off label use [Unknown]
